FAERS Safety Report 9372762 (Version 1)
Quarter: 2013Q2

REPORT INFORMATION
  Report Type: Report from Study
  Country: US (occurrence: US)
  Receive Date: 20130627
  Receipt Date: 20130627
  Transmission Date: 20140414
  Serious: Yes (Death)
  Sender: FDA-Public Use
  Company Number: US-MYLANLABS-2013S1008069

PATIENT
  Age: 34 Year
  Sex: Male

DRUGS (5)
  1. CLOZAPINE TABLETS [Suspect]
     Indication: SCHIZOPHRENIA
     Route: 048
     Dates: end: 2013
  2. CLOZAPINE TABLETS [Suspect]
     Indication: SCHIZOAFFECTIVE DISORDER
     Route: 048
     Dates: end: 2013
  3. SAPHRIS [Concomitant]
  4. TOPAMAX [Concomitant]
     Dosage: PER NEUROLOGY
  5. LAMICTAL [Concomitant]
     Dosage: PER NEUROLOGY

REACTIONS (1)
  - Death [Fatal]
